FAERS Safety Report 17901438 (Version 2)
Quarter: 2020Q2

REPORT INFORMATION
  Report Type: Spontaneous
  Country: US (occurrence: US)
  Receive Date: 20200616
  Receipt Date: 20200618
  Transmission Date: 20200714
  Serious: Yes (Other)
  Sender: FDA-Public Use
  Company Number: US-HIKMA PHARMACEUTICALS USA INC.-US-H14001-20-02809

PATIENT
  Age: 79 Year
  Sex: Male

DRUGS (4)
  1. OXCARBAZEPINE. [Suspect]
     Active Substance: OXCARBAZEPINE
     Indication: TRIGEMINAL NEURALGIA
  2. GABAPENTIN. [Concomitant]
     Active Substance: GABAPENTIN
     Indication: FACIAL PAIN
     Route: 065
  3. OXCARBAZEPINE. [Suspect]
     Active Substance: OXCARBAZEPINE
     Indication: FACIAL PAIN
     Route: 065
  4. PREGABALIN. [Concomitant]
     Active Substance: PREGABALIN
     Indication: FACIAL PAIN
     Route: 065

REACTIONS (3)
  - Balance disorder [Unknown]
  - Fatigue [Unknown]
  - Suicidal ideation [Unknown]
